FAERS Safety Report 5873013-0 (Version None)
Quarter: 2008Q3

REPORT INFORMATION
  Report Type: 
  Country: None (occurrence: None)
  Receive Date: 20080905
  Receipt Date: 20080828
  Transmission Date: 20090109
  Serious: Yes (Hospitalization, Other)
  Sender: FDA-Public Use
  Company Number: DK-PFIZER INC-2008072813

PATIENT
  Sex: Female
  Weight: 98 kg

DRUGS (1)
  1. ZARATOR [Suspect]
     Indication: HYPERCHOLESTEROLAEMIA
     Route: 048
     Dates: start: 20030101, end: 20080701

REACTIONS (13)
  - AMNESIA [None]
  - ANXIETY [None]
  - ARTHRALGIA [None]
  - DISTURBANCE IN ATTENTION [None]
  - INSOMNIA [None]
  - MENTAL DISORDER [None]
  - MYALGIA [None]
  - NIGHTMARE [None]
  - PNEUMONIA [None]
  - RESPIRATORY TRACT INFECTION [None]
  - SKIN DISORDER [None]
  - TREMOR [None]
  - VERTIGO [None]
